FAERS Safety Report 6714353-2 (Version None)
Quarter: 2010Q2

REPORT INFORMATION
  Report Type: 
  Country: None (occurrence: None)
  Receive Date: 20100504
  Receipt Date: 20100419
  Transmission Date: 20101027
  Serious: Yes (Life-Threatening, Hospitalization)
  Sender: FDA-Public Use
  Company Number: 2010001286

PATIENT
  Age: 60 Year
  Sex: Male

DRUGS (4)
  1. ERLOTINIB (ERLOTINIB) (TABLET) (ERLOTINIB) [Suspect]
     Indication: LUNG NEOPLASM MALIGNANT
     Dosage: (150 MG, QD), ORAL
     Route: 048
     Dates: start: 20100302
  2. TEMSIROLIMUS [Suspect]
     Indication: HEAD AND NECK CANCER
     Dosage: (15 MG, QW)
  3. AVELOX [Concomitant]
  4. ALBUTEROL SULFATE AND IPRATROPIUM BROMIDE [Concomitant]

REACTIONS (7)
  - BRAIN INJURY [None]
  - CARDIAC ARREST [None]
  - CEREBRAL ISCHAEMIA [None]
  - COMA [None]
  - DEPRESSED LEVEL OF CONSCIOUSNESS [None]
  - MYOCLONIC EPILEPSY [None]
  - PNEUMONIA [None]
